FAERS Safety Report 5187095-5 (Version None)
Quarter: 2006Q4

REPORT INFORMATION
  Report Type: 
  Country: None (occurrence: None)
  Receive Date: 20061214
  Receipt Date: 20061130
  Transmission Date: 20070319
  Serious: Yes (Death)
  Sender: FDA-Public Use
  Company Number: 2006S1000276

PATIENT
  Sex: Female

DRUGS (2)
  1. CUBICIN [Suspect]
     Indication: STAPHYLOCOCCAL INFECTION
     Dates: start: 20060801, end: 20060801
  2. LINEZOLID [Concomitant]

REACTIONS (3)
  - BLOOD CREATINE PHOSPHOKINASE INCREASED [None]
  - CARDIAC ARREST [None]
  - FALL [None]
